FAERS Safety Report 16219840 (Version 1)
Quarter: 2019Q2

REPORT INFORMATION
  Report Type: Spontaneous
  Country: DE (occurrence: DE)
  Receive Date: 20190420
  Receipt Date: 20190420
  Transmission Date: 20190711
  Serious: Yes (Other)
  Sender: FDA-Public Use
  Company Number: DE-SUN PHARMACEUTICAL INDUSTRIES LTD-2019RR-205793

PATIENT
  Age: 67 Year
  Sex: Female
  Weight: 68 kg

DRUGS (1)
  1. CIPROFLOXACIN. [Suspect]
     Active Substance: CIPROFLOXACIN
     Indication: PRODUCT USED FOR UNKNOWN INDICATION
     Dosage: 3 X 500 MG/DIE
     Route: 048
     Dates: start: 20180519, end: 20180522

REACTIONS (12)
  - Toothache [Not Recovered/Not Resolved]
  - Headache [Not Recovered/Not Resolved]
  - Aphasia [Not Recovered/Not Resolved]
  - Neck pain [Not Recovered/Not Resolved]
  - Vision blurred [Not Recovered/Not Resolved]
  - Myalgia [Not Recovered/Not Resolved]
  - Asthenia [Not Recovered/Not Resolved]
  - Constipation [Not Recovered/Not Resolved]
  - Fatigue [Not Recovered/Not Resolved]
  - Anosmia [Not Recovered/Not Resolved]
  - Gait disturbance [Not Recovered/Not Resolved]
  - Asthenia [Not Recovered/Not Resolved]

NARRATIVE: CASE EVENT DATE: 2018
